FAERS Safety Report 15219401 (Version 2)
Quarter: 2018Q4

REPORT INFORMATION
  Report Type: Spontaneous
  Country: US (occurrence: US)
  Receive Date: 20180731
  Receipt Date: 20181031
  Transmission Date: 20190204
  Serious: Yes (Hospitalization)
  Sender: FDA-Public Use
  Company Number: US-EMMAUS MEDICAL, INC.-EMM201805-000165

PATIENT
  Age: 16 Year
  Sex: Male

DRUGS (4)
  1. MOBIC [Concomitant]
     Active Substance: MELOXICAM
     Indication: PRODUCT USED FOR UNKNOWN INDICATION
  2. HYDROXYUREA. [Concomitant]
     Active Substance: HYDROXYUREA
     Indication: PRODUCT USED FOR UNKNOWN INDICATION
  3. CODEINE/OXYCONTIN [Concomitant]
     Indication: PRODUCT USED FOR UNKNOWN INDICATION
  4. ENDARI [Suspect]
     Active Substance: GLUTAMINE
     Indication: SICKLE CELL DISEASE
     Route: 048
     Dates: start: 20180418

REACTIONS (6)
  - Sickle cell anaemia with crisis [Unknown]
  - Product dose omission [Unknown]
  - Sickle cell anaemia with crisis [Unknown]
  - Sickle cell anaemia with crisis [Not Recovered/Not Resolved]
  - Adverse drug reaction [Unknown]
  - Drug ineffective [Unknown]

NARRATIVE: CASE EVENT DATE: 201806
